FAERS Safety Report 24341211 (Version 1)
Quarter: 2024Q3

REPORT INFORMATION
  Report Type: Spontaneous
  Country: SE (occurrence: SE)
  Receive Date: 20240919
  Receipt Date: 20240919
  Transmission Date: 20241017
  Serious: Yes (Hospitalization, Other)
  Sender: CIPLA
  Company Number: SE-SEMPA-2024-006516

PATIENT

DRUGS (14)
  1. ESOMEPRAZOLE [Suspect]
     Active Substance: ESOMEPRAZOLE
     Indication: Gastritis prophylaxis
     Dosage: 40 MILLIGRAM, QD (1X1) (GASTRO-RESISTANT CAPSULE, HARD)
     Route: 048
     Dates: start: 20211229, end: 20240903
  2. CYANOCOBALAMIN [Concomitant]
     Active Substance: CYANOCOBALAMIN
     Indication: Product used for unknown indication
     Dosage: 1 DOSAGE FORM
     Route: 048
  3. ATORVASTATIN [Concomitant]
     Active Substance: ATORVASTATIN
     Indication: Product used for unknown indication
     Dosage: 1 DOSAGE FORM, QD (1X1)
     Route: 048
  4. CANDEXETIL COMP [Concomitant]
     Indication: Product used for unknown indication
     Dosage: 1 DOSAGE FORM (STRENGTH: 16 MG/12,5 MG)
     Route: 048
  5. ACETAMINOPHEN [Concomitant]
     Active Substance: ACETAMINOPHEN
     Indication: Product used for unknown indication
     Dosage: UNK (2 VB)
     Route: 048
  6. FINASTERIDE [Concomitant]
     Active Substance: FINASTERIDE
     Indication: Product used for unknown indication
     Dosage: 1 DOSAGE FORM
     Route: 048
  7. POLYETHYLENE GLYCOL 3350\POTASSIUM CHLORIDE\SODIUM BICARBONATE\SODIUM [Concomitant]
     Active Substance: POLYETHYLENE GLYCOL 3350\POTASSIUM CHLORIDE\SODIUM BICARBONATE\SODIUM CHLORIDE
     Indication: Product used for unknown indication
     Dosage: UNK (1 VB) (POWDER FOR ORAL SOLUTION IN SACHET)
     Route: 048
  8. GLYTRIN [GLYCERYL TRINITRATE] [Concomitant]
     Indication: Product used for unknown indication
     Dosage: UNK
     Route: 060
  9. FOLSYRA EQL PHARMA [Concomitant]
     Indication: Product used for unknown indication
     Dosage: 1 DOSAGE FORM
     Route: 048
  10. BEVIPLEX FORTE [Concomitant]
     Indication: Product used for unknown indication
     Dosage: 1 DOSAGE FORM, QD (1X1)
     Route: 048
  11. METOPROLOL [Concomitant]
     Active Substance: METOPROLOL
     Indication: Product used for unknown indication
     Dosage: 1 DOSAGE FORM
     Route: 048
  12. AMLODIPINE BESYLATE [Concomitant]
     Active Substance: AMLODIPINE BESYLATE
     Indication: Product used for unknown indication
     Dosage: 1 DOSAGE FORM, QD (1X1)
     Route: 048
  13. ELIQUIS [Concomitant]
     Active Substance: APIXABAN
     Indication: Product used for unknown indication
     Dosage: UNK (1+1)
     Route: 048
  14. CALCITUGG [Concomitant]
     Indication: Product used for unknown indication
     Dosage: 2 DOSAGE FORM, QD (~2X1)
     Route: 048

REACTIONS (4)
  - Hypophosphataemia [Not Recovered/Not Resolved]
  - Hypokalaemia [Not Recovered/Not Resolved]
  - Hypomagnesaemia [Not Recovered/Not Resolved]
  - Hypocalcaemia [Not Recovered/Not Resolved]

NARRATIVE: CASE EVENT DATE: 20240829
